FAERS Safety Report 9061791 (Version 2)
Quarter: 2013Q1

REPORT INFORMATION
  Report Type: Spontaneous
  Country: US (occurrence: None)
  Receive Date: 20130118
  Receipt Date: 20130131
  Transmission Date: 20140127
  Serious: Yes (Other)
  Sender: FDA-Public Use
  Company Number: ADR-2013-00070

PATIENT
  Sex: Male

DRUGS (2)
  1. BACLOFEN INTRATHECAL [Suspect]
     Indication: CANCER PAIN
  2. BUPIVACAINE, DILAUDID (HYDROMORPHONE) [Concomitant]

REACTIONS (4)
  - No therapeutic response [None]
  - Pain [None]
  - Implant site mass [None]
  - Device dislocation [None]
